FAERS Safety Report 6601814-X (Version None)
Quarter: 2010Q1

REPORT INFORMATION
  Report Type: 
  Country: None (occurrence: None)
  Receive Date: 20100218
  Receipt Date: 20100212
  Transmission Date: 20100710
  Serious: Yes (Other)
  Sender: FDA-Public Use
  Company Number: 2010SP009248

PATIENT
  Age: 78 Year
  Sex: Female

DRUGS (1)
  1. MUSCULAR (VECURONIUM BROMIDE /00600002/) [Suspect]
     Indication: HYPOTONIA
     Dosage: IV
     Route: 042
     Dates: start: 20100212

REACTIONS (4)
  - ANAPHYLACTIC REACTION [None]
  - BLOOD PRESSURE DECREASED [None]
  - RESPIRATORY DISORDER [None]
  - VASODILATATION [None]
